FAERS Safety Report 18194806 (Version 2)
Quarter: 2021Q1

REPORT INFORMATION
  Report Type: Report from Study
  Country: US (occurrence: US)
  Receive Date: 20200826
  Receipt Date: 20210324
  Transmission Date: 20210419
  Serious: No
  Sender: FDA-Public Use
  Company Number: US-AMGEN-USASP2020134490

PATIENT
  Sex: Female

DRUGS (2)
  1. PROLIA [Suspect]
     Active Substance: DENOSUMAB
     Indication: PRODUCT USED FOR UNKNOWN INDICATION
     Dosage: UNK
     Route: 065
     Dates: end: 20200311
  2. ENBREL [Suspect]
     Active Substance: ETANERCEPT
     Indication: PSORIATIC ARTHROPATHY
     Dosage: UNK
     Route: 065

REACTIONS (5)
  - Myalgia [Unknown]
  - Arthritis [Unknown]
  - Arthralgia [Unknown]
  - Pain in extremity [Unknown]
  - Mobility decreased [Unknown]
